FAERS Safety Report 8475726 (Version 5)
Quarter: 2012Q4

REPORT INFORMATION
  Report Type: 
  Country: JP (occurrence: JP)
  Receive Date: 20120326
  Receipt Date: 20121105
  Transmission Date: 20130627
  Serious: Yes (Other)
  Sender: FDA-Public Use
  Company Number: PHHY2012JP025103

PATIENT
  Age: 50 Year
  Sex: Female

DRUGS (1)
  1. ZOLEDRONIC ACID [Suspect]
     Indication: METASTASES TO BONE
     Dosage: 4 mg QMO
     Route: 041

REACTIONS (3)
  - Fall [Unknown]
  - Femur fracture [Recovering/Resolving]
  - Pain in extremity [Unknown]
